FAERS Safety Report 7291436-2 (Version None)
Quarter: 2011Q1

REPORT INFORMATION
  Report Type: 
  Country: None (occurrence: None)
  Receive Date: 20110214
  Receipt Date: 20110203
  Transmission Date: 20110831
  Serious: Yes (Hospitalization)
  Sender: FDA-Public Use
  Company Number: US-JNJFOC-20100607534

PATIENT
  Sex: Male
  Weight: 82.1 kg

DRUGS (17)
  1. ASCORBIC ACID [Concomitant]
  2. HYZAAR [Concomitant]
     Dosage: 12.5 MG-50 MG PER DAY
  3. CARDURA [Concomitant]
  4. REMICADE [Suspect]
     Route: 042
  5. SOLU-CORTEF [Concomitant]
     Indication: PREMEDICATION
  6. PIROXICAM [Concomitant]
  7. LOPID [Concomitant]
  8. TOCOPHEROL CONCENTRATE CAP [Concomitant]
  9. ANTIBIOTIC [Suspect]
     Indication: URINARY TRACT INFECTION
  10. LOVAZA [Concomitant]
  11. FINASTERIDE [Concomitant]
  12. LYRICA [Concomitant]
  13. REMICADE [Suspect]
     Indication: RHEUMATOID ARTHRITIS
     Route: 042
  14. METHOTREXATE [Concomitant]
  15. RESTASIS [Concomitant]
  16. CYMBALTA [Suspect]
     Indication: ILL-DEFINED DISORDER
  17. MULTI-VITAMINS [Concomitant]

REACTIONS (4)
  - PNEUMONIA [None]
  - RESTRICTIVE PULMONARY DISEASE [None]
  - ACUTE RESPIRATORY DISTRESS SYNDROME [None]
  - ADVERSE EVENT [None]
